FAERS Safety Report 15928102 (Version 3)
Quarter: 2019Q2

REPORT INFORMATION
  Report Type: Report from Study
  Country: JP (occurrence: JP)
  Receive Date: 20190206
  Receipt Date: 20190430
  Transmission Date: 20190711
  Serious: Yes (Death)
  Sender: FDA-Public Use
  Company Number: PHJP2019JP001327

PATIENT
  Age: 69 Year
  Sex: Male

DRUGS (6)
  1. BORTEZOMIB. [Concomitant]
     Active Substance: BORTEZOMIB
     Indication: PLASMA CELL MYELOMA
     Dosage: 1.0 MG/M2, QW
     Route: 058
     Dates: start: 20160322, end: 20160410
  2. BORTEZOMIB. [Concomitant]
     Active Substance: BORTEZOMIB
     Dosage: 1.0 MG/M2, QW
     Route: 058
     Dates: start: 20160411, end: 20160413
  3. DEXAMETHASONE. [Concomitant]
     Active Substance: DEXAMETHASONE
     Indication: PLASMA CELL MYELOMA
     Dosage: UNK
     Route: 065
     Dates: start: 20160322, end: 20160410
  4. FARYDAK [Suspect]
     Active Substance: PANOBINOSTAT
     Indication: PLASMA CELL MYELOMA
     Dosage: 20 MG, QD
     Route: 048
     Dates: start: 20160322, end: 20160410
  5. FARYDAK [Suspect]
     Active Substance: PANOBINOSTAT
     Dosage: 20 MG, QD
     Route: 048
     Dates: start: 20160411, end: 20160413
  6. DEXAMETHASONE. [Concomitant]
     Active Substance: DEXAMETHASONE
     Dosage: UNK
     Route: 065
     Dates: start: 20160411, end: 20160413

REACTIONS (7)
  - Retinopathy [Fatal]
  - Retinal haemorrhage [Fatal]
  - Plasma cell myeloma [Fatal]
  - Anaemia [Fatal]
  - Drug ineffective [Unknown]
  - Malignant neoplasm progression [Fatal]
  - Platelet count decreased [Fatal]

NARRATIVE: CASE EVENT DATE: 20160413
